FAERS Safety Report 21238567 (Version 1)
Quarter: 2022Q3

REPORT INFORMATION
  Report Type: Spontaneous
  Country: US (occurrence: None)
  Receive Date: 20220819
  Receipt Date: 20220819
  Transmission Date: 20221027
  Serious: Yes (Other)
  Sender: FDA-Public Use
  Company Number: None

PATIENT
  Age: 29 Year
  Sex: Female
  Weight: 84.6 kg

DRUGS (3)
  1. EMGALITY [Suspect]
     Active Substance: GALCANEZUMAB-GNLM
     Indication: Migraine
     Dates: start: 20220816, end: 20220816
  2. Emgality- stopped [Concomitant]
  3. Nurtec Rizatriptan [Concomitant]

REACTIONS (9)
  - Vertigo [None]
  - Pruritus [None]
  - Pruritus [None]
  - Arthralgia [None]
  - Arthralgia [None]
  - Arthralgia [None]
  - Dysstasia [None]
  - Gait disturbance [None]
  - Pain in extremity [None]

NARRATIVE: CASE EVENT DATE: 20220818
